FAERS Safety Report 4869725-8 (Version None)
Quarter: 2005Q4

REPORT INFORMATION
  Report Type: 
  Country: None (occurrence: None)
  Receive Date: 20051223
  Receipt Date: 20051212
  Transmission Date: 20060501
  Serious: Yes (Death)
  Sender: FDA-Public Use
  Company Number: 220272

PATIENT
  Sex: Male
  Weight: 77.2 kg

DRUGS (2)
  1. EFALIZUMAB (EFALIZUMAB) PWDR + SOLVENT, INJECTION SOLN, 125MG [Suspect]
     Indication: PSORIASIS
     Dosage: 1 MG/KG, SUBCUTANEOUS
     Route: 058
     Dates: start: 20031208, end: 20040106
  2. INSULIN [Concomitant]

REACTIONS (2)
  - DIABETIC KETOACIDOSIS [None]
  - PNEUMONIA BACTERIAL [None]
